FAERS Safety Report 4549952-X (Version None)
Quarter: 2005Q1

REPORT INFORMATION
  Report Type: 
  Country: None (occurrence: None)
  Receive Date: 20050112
  Receipt Date: 20050103
  Transmission Date: 20050727
  Serious: Yes (Other)
  Sender: FDA-Public Use
  Company Number: PHEH2005US00472

PATIENT
  Age: 66 Year
  Sex: Female

DRUGS (7)
  1. TEGRETOL [Suspect]
     Indication: CONVULSION
     Dosage: 100 MG, TID
     Route: 048
     Dates: start: 20040801, end: 20040801
  2. PHENYTOIN [Suspect]
     Dates: start: 20040801
  3. PHENYTOIN [Suspect]
     Dosage: 300 MG, QD
     Dates: start: 20041001, end: 20041214
  4. SIMVASTATIN [Concomitant]
  5. ZOLOFT [Concomitant]
  6. MULTIVITAMIN [Concomitant]
  7. FOSAMAX [Concomitant]

REACTIONS (6)
  - DIZZINESS [None]
  - DRUG HYPERSENSITIVITY [None]
  - HEPATIC ENZYME INCREASED [None]
  - NAUSEA [None]
  - RASH [None]
  - RIB FRACTURE [None]
